FAERS Safety Report 10151568 (Version 2)
Quarter: 2014Q2

REPORT INFORMATION
  Report Type: Spontaneous
  Country: US (occurrence: US)
  Receive Date: 20140505
  Receipt Date: 20140513
  Transmission Date: 20141212
  Serious: Yes (Death, Other)
  Sender: FDA-Public Use
  Company Number: US-009507513-1404USA014511

PATIENT
  Sex: Male

DRUGS (1)
  1. ASMANEX TWISTHALER [Suspect]
     Indication: PULMONARY MASS
     Dosage: 1 STANDARD DOSE OF 60, ONE INHALATION TWICE A DAY
     Route: 055
     Dates: start: 200904

REACTIONS (2)
  - Hepatic cancer [Fatal]
  - Product container issue [Unknown]
